FAERS Safety Report 24095594 (Version 1)
Quarter: 2024Q3

REPORT INFORMATION
  Report Type: Spontaneous
  Country: TW (occurrence: TW)
  Receive Date: 20240716
  Receipt Date: 20240716
  Transmission Date: 20241017
  Serious: Yes (Death, Hospitalization, Other)
  Sender: ASTELLAS
  Company Number: TW-ROCHE-10000007772

PATIENT
  Age: 57 Year
  Sex: Male
  Weight: 54 kg

DRUGS (30)
  1. ERLOTINIB [Suspect]
     Active Substance: ERLOTINIB
     Indication: Abdominal infection
     Dosage: UNK UNK, UNKNOWN FREQ.
     Route: 065
  2. ERLOTINIB [Suspect]
     Active Substance: ERLOTINIB
     Indication: Abdominal pain
  3. ERLOTINIB [Suspect]
     Active Substance: ERLOTINIB
     Indication: Ascites
  4. ERLOTINIB [Suspect]
     Active Substance: ERLOTINIB
     Indication: Constipation
  5. ERLOTINIB [Suspect]
     Active Substance: ERLOTINIB
     Indication: Cough
  6. ERLOTINIB [Suspect]
     Active Substance: ERLOTINIB
     Indication: Decreased appetite
  7. ERLOTINIB [Suspect]
     Active Substance: ERLOTINIB
     Indication: Dysuria
  8. ERLOTINIB [Suspect]
     Active Substance: ERLOTINIB
     Indication: Hepatic cancer
  9. ERLOTINIB [Suspect]
     Active Substance: ERLOTINIB
     Indication: Hepatic function abnormal
  10. ERLOTINIB [Suspect]
     Active Substance: ERLOTINIB
     Indication: Hyperchlorhydria
  11. ERLOTINIB [Suspect]
     Active Substance: ERLOTINIB
     Indication: Hypertension
  12. ERLOTINIB [Suspect]
     Active Substance: ERLOTINIB
     Indication: Insomnia
  13. ERLOTINIB [Suspect]
     Active Substance: ERLOTINIB
     Indication: Rash
  14. ERLOTINIB [Suspect]
     Active Substance: ERLOTINIB
     Indication: Stomatitis
  15. ERLOTINIB [Suspect]
     Active Substance: ERLOTINIB
     Indication: Viral infection
  16. SORAFENIB [Suspect]
     Active Substance: SORAFENIB
     Indication: Abdominal infection
     Dosage: UNK UNK, UNKNOWN FREQ.
     Route: 065
  17. SORAFENIB [Suspect]
     Active Substance: SORAFENIB
     Indication: Abdominal pain
  18. SORAFENIB [Suspect]
     Active Substance: SORAFENIB
     Indication: Ascites
  19. SORAFENIB [Suspect]
     Active Substance: SORAFENIB
     Indication: Constipation
  20. SORAFENIB [Suspect]
     Active Substance: SORAFENIB
     Indication: Cough
  21. SORAFENIB [Suspect]
     Active Substance: SORAFENIB
     Indication: Decreased appetite
  22. SORAFENIB [Suspect]
     Active Substance: SORAFENIB
     Indication: Dysuria
  23. SORAFENIB [Suspect]
     Active Substance: SORAFENIB
     Indication: Hepatic cancer
  24. SORAFENIB [Suspect]
     Active Substance: SORAFENIB
     Indication: Hepatic function abnormal
  25. SORAFENIB [Suspect]
     Active Substance: SORAFENIB
     Indication: Hyperchlorhydria
  26. SORAFENIB [Suspect]
     Active Substance: SORAFENIB
     Indication: Hypertension
  27. SORAFENIB [Suspect]
     Active Substance: SORAFENIB
     Indication: Insomnia
  28. SORAFENIB [Suspect]
     Active Substance: SORAFENIB
     Indication: Rash
  29. SORAFENIB [Suspect]
     Active Substance: SORAFENIB
     Indication: Stomatitis
  30. SORAFENIB [Suspect]
     Active Substance: SORAFENIB
     Indication: Viral infection

REACTIONS (10)
  - Weight decreased [Fatal]
  - Liver carcinoma ruptured [Fatal]
  - Insomnia [Fatal]
  - Oedema [Fatal]
  - Dizziness [Fatal]
  - Ascites [Fatal]
  - Haemorrhage [Fatal]
  - Hepatic function abnormal [Fatal]
  - Dysuria [Fatal]
  - Hepatic failure [Fatal]

NARRATIVE: CASE EVENT DATE: 20100520
